FAERS Safety Report 13707053 (Version 1)
Quarter: 2017Q2

REPORT INFORMATION
  Report Type: Spontaneous
  Country: US (occurrence: US)
  Receive Date: 20170630
  Receipt Date: 20170630
  Transmission Date: 20170830
  Serious: No
  Sender: FDA-Public Use
  Company Number: US-ASTRAZENECA-2010BM08184

PATIENT
  Sex: Female
  Weight: 78 kg

DRUGS (9)
  1. METFORMIN [Concomitant]
     Active Substance: METFORMIN HYDROCHLORIDE
     Indication: DIABETES MELLITUS
     Route: 048
  2. CRESTOR [Suspect]
     Active Substance: ROSUVASTATIN CALCIUM
     Indication: BLOOD CHOLESTEROL ABNORMAL
     Route: 048
  3. APIDRA [Concomitant]
     Active Substance: INSULIN GLULISINE
     Indication: BLOOD GLUCOSE INCREASED
  4. BYETTA [Suspect]
     Active Substance: EXENATIDE
     Indication: INSULIN-REQUIRING TYPE 2 DIABETES MELLITUS
     Route: 058
     Dates: start: 200911
  5. ACTOS [Concomitant]
     Active Substance: PIOGLITAZONE HYDROCHLORIDE
     Dosage: UNK
  6. PIOGLITAZONE. [Concomitant]
     Active Substance: PIOGLITAZONE
     Indication: DIABETES MELLITUS
     Route: 048
  7. GLIMEPIRIDE. [Concomitant]
     Active Substance: GLIMEPIRIDE
  8. EXENATIDE 5MCG PEN, DISPOSABLE DEVICE [Concomitant]
     Active Substance: EXENATIDE
  9. BYETTA [Suspect]
     Active Substance: EXENATIDE
     Indication: INSULIN-REQUIRING TYPE 2 DIABETES MELLITUS
     Dosage: TWO TIMES A DAY
     Route: 058

REACTIONS (11)
  - Hypophagia [Unknown]
  - Chills [Recovered/Resolved]
  - Nausea [Not Recovered/Not Resolved]
  - Blood glucose increased [Recovered/Resolved]
  - Dysgeusia [Unknown]
  - Blood glucose decreased [Recovered/Resolved]
  - Intentional product misuse [Recovered/Resolved]
  - Eye oedema [Not Recovered/Not Resolved]
  - Diabetes mellitus [Unknown]
  - Weight decreased [Unknown]
  - Off label use [Unknown]
